FAERS Safety Report 8499200-3 (Version None)
Quarter: 2012Q2

REPORT INFORMATION
  Report Type: 
  Country: None (occurrence: None)
  Receive Date: 20120405
  Receipt Date: 20100623
  Transmission Date: 20120825
  Serious: Yes (Other)
  Sender: FDA-Public Use
  Company Number: PHHY2010US42045

PATIENT
  Sex: Female

DRUGS (2)
  1. WATER PILLS (AMMONIUM CHLORIDE, CAFFEINE) [Concomitant]
  2. RECLAST [Suspect]
     Dosage: INTRAVENOUS
     Route: 042
     Dates: start: 20090801

REACTIONS (8)
  - WEIGHT INCREASED [None]
  - BURNING SENSATION [None]
  - WHEELCHAIR USER [None]
  - MUSCLE SPASMS [None]
  - PAIN IN EXTREMITY [None]
  - COUGH [None]
  - JOINT SWELLING [None]
  - GAIT DISTURBANCE [None]
